FAERS Safety Report 19988989 (Version 3)
Quarter: 2022Q1

REPORT INFORMATION
  Report Type: Spontaneous
  Country: FR (occurrence: FR)
  Receive Date: 20211024
  Receipt Date: 20220128
  Transmission Date: 20220424
  Serious: Yes (Life-Threatening, Hospitalization, Other)
  Sender: FDA-Public Use
  Company Number: FR-CELLTRION INC.-2021FR014235

PATIENT

DRUGS (18)
  1. RITUXIMAB [Suspect]
     Active Substance: RITUXIMAB
     Indication: Haematological malignancy
     Dosage: UNK
     Route: 065
  2. RITUXIMAB [Suspect]
     Active Substance: RITUXIMAB
     Indication: Follicular lymphoma
     Dosage: UNK (ACTION TAKEN: COURSE COMPLETED)
     Route: 065
     Dates: start: 2015
  3. RITUXIMAB [Suspect]
     Active Substance: RITUXIMAB
     Dosage: MAINTENANCE THERAPY WITH RITUXIMAB EVERY 2 MONTHS, FOR 18 MONTHS
     Dates: start: 201504, end: 202101
  4. RITUXIMAB [Suspect]
     Active Substance: RITUXIMAB
     Dosage: UNK
     Route: 065
     Dates: start: 2015
  5. CYCLOPHOSPHAMIDE\DOXORUBICIN\PREDNISONE\VINCRISTINE [Suspect]
     Active Substance: CYCLOPHOSPHAMIDE\DOXORUBICIN\PREDNISONE\VINCRISTINE
     Indication: Haematological malignancy
     Route: 065
  6. INTERFERON GAMMA [Suspect]
     Active Substance: INTERFERON GAMMA
     Indication: Follicular lymphoma
     Dosage: 50 UG, 3/WEEK (ADD-ON THERAPY)
     Route: 058
  7. INTERFERON GAMMA [Suspect]
     Active Substance: INTERFERON GAMMA
     Dosage: AFTER 2 WEEKS AT 100 UG, 3/WEEK
     Route: 058
  8. PREDNISONE [Suspect]
     Active Substance: PREDNISONE
     Indication: Follicular lymphoma
     Dosage: UNK
     Route: 065
     Dates: start: 2015
  9. DOXORUBICIN [Suspect]
     Active Substance: DOXORUBICIN
     Indication: Follicular lymphoma
     Dosage: UNK
     Route: 065
     Dates: start: 2015
  10. PYRAZINAMIDE [Suspect]
     Active Substance: PYRAZINAMIDE
     Indication: Mycobacterium tuberculosis complex test positive
     Dosage: UNK
     Route: 065
     Dates: start: 2018
  11. VINCRISTINE [Suspect]
     Active Substance: VINCRISTINE
     Indication: Follicular lymphoma
     Dosage: UNK
     Route: 065
     Dates: start: 2015
  12. CYCLOPHOSPHAMIDE [Suspect]
     Active Substance: CYCLOPHOSPHAMIDE
     Indication: Follicular lymphoma
     Dosage: UNK
     Route: 065
     Dates: start: 2015
  13. ETHAMBUTOL [Suspect]
     Active Substance: ETHAMBUTOL HYDROCHLORIDE
     Indication: Mycobacterium tuberculosis complex test positive
     Dosage: UNK
     Route: 065
     Dates: start: 2018
  14. FLUCONAZOLE [Concomitant]
     Active Substance: FLUCONAZOLE
     Indication: Cryptococcosis
     Dosage: UNK
     Route: 065
     Dates: start: 2018
  15. PIPERACILLIN AND TAZOBACTAM [Concomitant]
     Active Substance: PIPERACILLIN SODIUM\TAZOBACTAM SODIUM
     Indication: Pneumocystis jirovecii infection
     Dosage: UNK
     Route: 065
     Dates: start: 2018
  16. ISONIAZID [Concomitant]
     Active Substance: ISONIAZID
     Indication: Mycobacterium tuberculosis complex test positive
     Dosage: UNK
     Route: 065
     Dates: start: 2018
  17. RIFAMPIN [Concomitant]
     Active Substance: RIFAMPIN
     Indication: Mycobacterium tuberculosis complex test positive
     Dosage: UNK
     Route: 065
     Dates: start: 2018
  18. SULFAMETHOXAZOLE AND TRIMETHOPRIM [Concomitant]
     Active Substance: SULFAMETHOXAZOLE\TRIMETHOPRIM
     Indication: Pneumocystis jirovecii infection
     Dosage: UNK
     Route: 065
     Dates: start: 2018

REACTIONS (11)
  - Condition aggravated [Unknown]
  - Bone marrow failure [Recovered/Resolved]
  - Tubulointerstitial nephritis [Recovered/Resolved]
  - Acute kidney injury [Recovered/Resolved]
  - Disseminated Bacillus Calmette-Guerin infection [Recovered/Resolved]
  - Interstitial lung disease [Recovered/Resolved]
  - Pneumocystis jirovecii infection [Recovered/Resolved]
  - Cryptococcosis [Recovered/Resolved]
  - Hypogammaglobulinaemia [Recovered/Resolved]
  - Mycobacterial infection [Recovered/Resolved]
  - Drug ineffective [Unknown]

NARRATIVE: CASE EVENT DATE: 20180101
